FAERS Safety Report 20398035 (Version 2)
Quarter: 2022Q1

REPORT INFORMATION
  Report Type: Spontaneous
  Country: US (occurrence: US)
  Receive Date: 20220131
  Receipt Date: 20220201
  Transmission Date: 20220423
  Serious: No
  Sender: FDA-Public Use
  Company Number: US-ABBVIE-21K-163-3740786-00

PATIENT
  Age: 77 Year
  Sex: Male

DRUGS (17)
  1. HUMIRA [Suspect]
     Active Substance: ADALIMUMAB
     Indication: Crohn^s disease
     Route: 058
     Dates: start: 202012, end: 202012
  2. HUMIRA [Suspect]
     Active Substance: ADALIMUMAB
     Route: 058
     Dates: start: 202012, end: 202012
  3. HUMIRA [Suspect]
     Active Substance: ADALIMUMAB
     Route: 058
     Dates: start: 20210113
  4. JANUVIA [Concomitant]
     Active Substance: SITAGLIPTIN PHOSPHATE
     Indication: Diabetes mellitus
  5. ROSUVASTATIN [Concomitant]
     Active Substance: ROSUVASTATIN
     Indication: Hypercholesterolaemia
  6. LOSARTAN [Concomitant]
     Active Substance: LOSARTAN
     Indication: Hypertension
  7. NADOLOL [Concomitant]
     Active Substance: NADOLOL
     Indication: Hypertension
  8. NADOLOL [Concomitant]
     Active Substance: NADOLOL
     Indication: Cardiac disorder
  9. MYRBETRIQ [Concomitant]
     Active Substance: MIRABEGRON
     Indication: Dysuria
  10. AMLODIPINE BESYLATE [Concomitant]
     Active Substance: AMLODIPINE BESYLATE
     Indication: Hypertension
  11. FAMOTIDINE [Concomitant]
     Active Substance: FAMOTIDINE
     Indication: Gastrooesophageal reflux disease
  12. FLUTICASONE PROPIONATE [Concomitant]
     Active Substance: FLUTICASONE PROPIONATE
     Indication: Hypersensitivity
  13. AZELASTINE HYDROCHLORIDE [Concomitant]
     Active Substance: AZELASTINE HYDROCHLORIDE
     Indication: Sinus disorder
     Dosage: SPRAY
  14. MERCAPTOPURINE [Concomitant]
     Active Substance: MERCAPTOPURINE
     Indication: Crohn^s disease
  15. CIALIS [Concomitant]
     Active Substance: TADALAFIL
     Indication: Product used for unknown indication
  16. CLARITIN [Concomitant]
     Active Substance: LORATADINE
     Indication: Hypersensitivity
  17. LEVITRA [Concomitant]
     Active Substance: VARDENAFIL HYDROCHLORIDE
     Indication: Product used for unknown indication

REACTIONS (9)
  - Wrong technique in product usage process [Unknown]
  - Incorrect dose administered [Unknown]
  - Device issue [Recovered/Resolved]
  - Pruritus [Not Recovered/Not Resolved]
  - Injection site erythema [Unknown]
  - Injection site swelling [Not Recovered/Not Resolved]
  - Injection site urticaria [Recovered/Resolved]
  - Injection site bruising [Recovered/Resolved]
  - Injection site papule [Recovered/Resolved]

NARRATIVE: CASE EVENT DATE: 20201201
